FAERS Safety Report 8888587 (Version 8)
Quarter: 2014Q2

REPORT INFORMATION
  Report Type: Spontaneous
  Country: US (occurrence: US)
  Receive Date: 20121106
  Receipt Date: 20140602
  Transmission Date: 20141212
  Serious: Yes (Hospitalization, Disabling, Other)
  Sender: FDA-Public Use
  Company Number: US-009507513-1210USA014639

PATIENT
  Sex: Female
  Weight: 90.25 kg

DRUGS (6)
  1. FOSAMAX [Suspect]
     Indication: OSTEOPENIA
     Dosage: UNK
     Route: 048
     Dates: end: 20080206
  2. FOSAMAX [Suspect]
     Indication: OSTEOPOROSIS
     Dosage: 70 MG, QW
     Route: 048
     Dates: start: 20030418, end: 20080206
  3. FOSAMAX [Suspect]
     Dosage: 10 MG, QD
     Route: 048
  4. ALENDRONATE SODIUM [Suspect]
     Indication: OSTEOPENIA
     Dosage: 70 MG, UNK
     Route: 048
     Dates: start: 20080206, end: 2011
  5. CALCIUM (UNSPECIFIED) [Concomitant]
     Indication: OSTEOPOROSIS
  6. EVISTA [Concomitant]
     Indication: OSTEOPOROSIS
     Dosage: 60 MG, QD

REACTIONS (43)
  - Femur fracture [Not Recovered/Not Resolved]
  - Intramedullary rod insertion [Unknown]
  - Osteoporosis [Not Recovered/Not Resolved]
  - Stress fracture [Not Recovered/Not Resolved]
  - Femur fracture [Not Recovered/Not Resolved]
  - Low turnover osteopathy [Not Recovered/Not Resolved]
  - Nephrolithiasis [Unknown]
  - Pancreaticoduodenectomy [Unknown]
  - Dental prosthesis placement [Unknown]
  - Depression [Unknown]
  - Insomnia [Unknown]
  - Gout [Unknown]
  - Breast lump removal [Unknown]
  - Pancreatic disorder [Unknown]
  - Asthma [Unknown]
  - Excoriation [Unknown]
  - Blood chloride abnormal [Unknown]
  - Anaemia [Unknown]
  - Joint dislocation [Unknown]
  - Joint dislocation reduction [Unknown]
  - Hypoxia [Unknown]
  - Gastroenteritis viral [Unknown]
  - Abnormal dreams [Unknown]
  - Anaemia postoperative [Unknown]
  - Sleep apnoea syndrome [Unknown]
  - Osteoporosis [Unknown]
  - Hyperparathyroidism [Unknown]
  - Uterine leiomyoma [Unknown]
  - Hysteroscopy [Unknown]
  - Atrophic vulvovaginitis [Unknown]
  - Laparotomy [Unknown]
  - Urinary tract infection [Unknown]
  - Urinary tract infection [Unknown]
  - Hypercalciuria [Unknown]
  - Cystocele [Unknown]
  - Breast disorder [Unknown]
  - Hypertension [Unknown]
  - Hiatus hernia [Unknown]
  - Pyrexia [Unknown]
  - Dyspepsia [Unknown]
  - Abdominal pain [Unknown]
  - Gastrooesophageal reflux disease [Unknown]
  - Arthralgia [Unknown]
